FAERS Safety Report 19236827 (Version 1)
Quarter: 2021Q2

REPORT INFORMATION
  Report Type: Spontaneous
  Country: US (occurrence: US)
  Receive Date: 20210508
  Receipt Date: 20210508
  Transmission Date: 20210717
  Serious: No
  Sender: FDA-Public Use
  Company Number: None

PATIENT
  Sex: Male

DRUGS (1)
  1. DROXIDOPA 300MG ZYDUS PHARMACEUTICALS(USA) [Suspect]
     Active Substance: DROXIDOPA
     Indication: SYNCOPE
     Route: 048
     Dates: start: 20210222, end: 202105

REACTIONS (4)
  - Hypophagia [None]
  - Anxiety [None]
  - Product use complaint [None]
  - Product substitution issue [None]
